FAERS Safety Report 14538442 (Version 2)
Quarter: 2018Q2

REPORT INFORMATION
  Report Type: Spontaneous
  Country: FR (occurrence: FR)
  Receive Date: 20180216
  Receipt Date: 20180612
  Transmission Date: 20180711
  Serious: Yes (Other)
  Sender: FDA-Public Use
  Company Number: FR-MERCK KGAA-2042098

PATIENT
  Sex: Female

DRUGS (8)
  1. INEGY [Concomitant]
     Active Substance: EZETIMIBE\SIMVASTATIN
  2. HEMIGOXINE [Concomitant]
     Active Substance: DIGOXIN
  3. GLIMEPIRIDE. [Concomitant]
     Active Substance: GLIMEPIRIDE
  4. JANUVIA [Concomitant]
     Active Substance: SITAGLIPTIN PHOSPHATE
  5. METFORMINE [Concomitant]
     Active Substance: METFORMIN HYDROCHLORIDE
  6. LOSARTAN. [Concomitant]
     Active Substance: LOSARTAN
  7. NOVOTHYROX [Suspect]
     Active Substance: LEVOTHYROXINE SODIUM
     Indication: HYPOTHYROIDISM
     Dates: start: 2017
  8. LASILIX [Concomitant]
     Active Substance: FUROSEMIDE

REACTIONS (10)
  - Diabetes mellitus inadequate control [Recovering/Resolving]
  - Tachycardia [Not Recovered/Not Resolved]
  - Decreased appetite [None]
  - Insomnia [Not Recovered/Not Resolved]
  - Muscle spasms [Recovering/Resolving]
  - Dizziness [None]
  - Headache [Not Recovered/Not Resolved]
  - Sleep disorder [Recovering/Resolving]
  - Musculoskeletal stiffness [Not Recovered/Not Resolved]
  - Irritability [None]
